FAERS Safety Report 6219706-7 (Version None)
Quarter: 2009Q2

REPORT INFORMATION
  Report Type: 
  Country: None (occurrence: None)
  Receive Date: 20090609
  Receipt Date: 20090605
  Transmission Date: 20091009
  Serious: Yes (Other)
  Sender: FDA-Public Use
  Company Number: US-BRISTOL-MYERS SQUIBB COMPANY-14646558

PATIENT
  Age: 60 Year
  Sex: Female

DRUGS (3)
  1. IXEMPRA KIT [Suspect]
     Indication: BREAST CANCER METASTATIC
  2. ABRAXANE [Suspect]
     Indication: BREAST CANCER METASTATIC
  3. XELODA [Concomitant]

REACTIONS (2)
  - ABASIA [None]
  - NEUROPATHY PERIPHERAL [None]
